FAERS Safety Report 6902285-6 (Version None)
Quarter: 2010Q3

REPORT INFORMATION
  Report Type: 
  Country: None (occurrence: None)
  Receive Date: 20100803
  Receipt Date: 20080506
  Transmission Date: 20110219
  Serious: Yes (Other)
  Sender: FDA-Public Use
  Company Number: US-PFIZER INC-2008032222

PATIENT
  Age: 49 Year
  Sex: Female

DRUGS (37)
  1. LYRICA [Suspect]
     Indication: DIABETIC NEUROPATHY
     Dates: start: 20070912, end: 20080221
  2. DILAUDID [Concomitant]
     Route: 048
     Dates: start: 20080306
  3. PRILOSEC [Concomitant]
     Route: 048
     Dates: start: 20080222
  4. XOPENEX [Concomitant]
     Route: 048
     Dates: start: 20071205
  5. LEXAPRO [Concomitant]
     Route: 048
     Dates: start: 20071101
  6. IMDUR [Concomitant]
     Route: 048
     Dates: start: 20071018
  7. MIRAPEX [Concomitant]
     Route: 048
     Dates: start: 20071018
  8. METOPROLOL [Concomitant]
     Route: 048
     Dates: start: 20071018
  9. PROCRIT [Concomitant]
     Route: 058
     Dates: start: 20071018
  10. CRESTOR [Concomitant]
     Route: 048
     Dates: start: 20071018
  11. DEMADEX [Concomitant]
     Route: 048
     Dates: start: 20071003
  12. LEVOTHYROXINE [Concomitant]
     Route: 048
     Dates: start: 20070828
  13. LEVAQUIN [Concomitant]
     Route: 048
     Dates: start: 20070828
  14. LEVAQUIN [Concomitant]
     Route: 048
     Dates: start: 20070828
  15. RENAGEL [Concomitant]
     Route: 048
     Dates: start: 20070828
  16. RENAGEL [Concomitant]
     Route: 048
     Dates: start: 20070828
  17. AMBIEN [Concomitant]
     Route: 048
     Dates: start: 20070802
  18. AMBIEN [Concomitant]
     Route: 048
     Dates: start: 20070802
  19. CREON [Concomitant]
     Route: 048
     Dates: start: 20061108
  20. CREON [Concomitant]
     Route: 048
     Dates: start: 20061108
  21. HUMALOG [Concomitant]
     Route: 058
     Dates: start: 20060410
  22. HUMALOG [Concomitant]
     Dates: start: 20060410
  23. ALLOPURINOL [Concomitant]
     Route: 048
     Dates: start: 20060410
  24. ALLOPURINOL [Concomitant]
     Route: 048
     Dates: start: 20060410
  25. NITROGLYCERIN [Concomitant]
     Route: 060
     Dates: start: 20060308
  26. NITROGLYCERIN [Concomitant]
     Dates: start: 20060308
  27. AZMACORT [Concomitant]
     Route: 055
     Dates: start: 20080306
  28. ADVAIR DISKUS 100/50 [Concomitant]
     Route: 055
     Dates: start: 20080222
  29. HYDROCODONE BITARTRATE [Concomitant]
     Route: 048
     Dates: start: 20071205
  30. ALBUTEROL [Concomitant]
     Route: 055
     Dates: start: 20071101
  31. FLEXERIL [Concomitant]
     Route: 048
     Dates: start: 20071018
  32. DIFLUCAN [Concomitant]
     Route: 048
     Dates: start: 20071018
  33. MONTELUKAST [Concomitant]
     Route: 048
     Dates: start: 20071018
  34. NASONEX [Concomitant]
     Route: 045
     Dates: start: 20071018
  35. ACETYLSALICYLIC ACID SRT [Concomitant]
     Route: 048
     Dates: start: 20071018
  36. NEURONTIN [Concomitant]
     Route: 048
     Dates: start: 20071003
  37. CLONAZEPAM [Concomitant]
     Route: 048
     Dates: start: 20070828

REACTIONS (1)
  - THROMBOCYTOPENIA [None]
